FAERS Safety Report 23501499 (Version 2)
Quarter: 2024Q1

REPORT INFORMATION
  Report Type: Spontaneous
  Country: FR (occurrence: FR)
  Receive Date: 20240208
  Receipt Date: 20240222
  Transmission Date: 20240410
  Serious: Yes (Other)
  Sender: FDA-Public Use
  Company Number: FR-SANOFI-01892288

PATIENT

DRUGS (6)
  1. HYDROXYCHLOROQUINE SULFATE [Suspect]
     Active Substance: HYDROXYCHLOROQUINE SULFATE
     Indication: Polymorphic light eruption
     Dosage: UNK, (FILM-COATED TABLET)
     Route: 065
     Dates: start: 20231208, end: 202312
  2. ALLEGRA [Suspect]
     Active Substance: FEXOFENADINE HYDROCHLORIDE
     Indication: Pruritus
     Dosage: UNK
     Route: 065
  3. LEVOCETIRIZINE [Suspect]
     Active Substance: LEVOCETIRIZINE
     Indication: Photosensitivity reaction
     Dosage: 5 MG, QD (1 TABLET IN THE EVENING)
     Route: 065
  4. DIAZEPAM [Suspect]
     Active Substance: DIAZEPAM
     Indication: Insomnia
     Dosage: 1 MG, BID (ONE IN MORNING ONE IN EVENING)
     Dates: start: 202401
  5. DIAZEPAM [Suspect]
     Active Substance: DIAZEPAM
     Indication: Rash erythematous
  6. DIAZEPAM [Suspect]
     Active Substance: DIAZEPAM
     Indication: Pruritus

REACTIONS (5)
  - Toxic skin eruption [Unknown]
  - Pruritus [Recovering/Resolving]
  - Insomnia [Recovering/Resolving]
  - Rash erythematous [Recovering/Resolving]
  - Drug ineffective [Unknown]

NARRATIVE: CASE EVENT DATE: 20231201
